FAERS Safety Report 20112373 (Version 1)
Quarter: 2021Q4

REPORT INFORMATION
  Report Type: Spontaneous
  Country: IN (occurrence: IN)
  Receive Date: 20211125
  Receipt Date: 20211125
  Transmission Date: 20220303
  Serious: Yes (Death, Hospitalization)
  Sender: FDA-Public Use
  Company Number: IN-STRIDES ARCOLAB LIMITED-2021SP030163

PATIENT
  Age: 48 Year
  Sex: Male

DRUGS (7)
  1. PREDNISOLONE [Suspect]
     Active Substance: PREDNISOLONE
     Indication: Liver transplant
     Dosage: UNK
     Route: 065
  2. PREDNISOLONE [Suspect]
     Active Substance: PREDNISOLONE
     Dosage: UNK, REDUCTION IN IMMUNOSUPPRESSIVE DRUGS
     Route: 065
  3. MYCOPHENOLATE MOFETIL [Suspect]
     Active Substance: MYCOPHENOLATE MOFETIL
     Indication: Liver transplant
     Dosage: UNK
     Route: 065
  4. MYCOPHENOLATE MOFETIL [Suspect]
     Active Substance: MYCOPHENOLATE MOFETIL
     Dosage: UNK, REDUCTION IN IMMUNOSUPPRESSIVE DRUGS
     Route: 065
  5. TACROLIMUS [Suspect]
     Active Substance: TACROLIMUS
     Indication: Liver transplant
     Dosage: UNK
     Route: 065
  6. TACROLIMUS [Suspect]
     Active Substance: TACROLIMUS
     Dosage: UNK, REDUCTION IN IMMUNOSUPPRESSIVE DRUGSUNK
     Route: 065
  7. METHYLPREDNISOLONE [Suspect]
     Active Substance: METHYLPREDNISOLONE
     Indication: Transplant rejection
     Dosage: 2 PULSES, UNK
     Route: 065

REACTIONS (8)
  - Multi-organ disorder [Fatal]
  - Sepsis [Fatal]
  - Cholestasis [Unknown]
  - Vanishing bile duct syndrome [Unknown]
  - Renal impairment [Recovered/Resolved]
  - Chronic hepatitis [Recovered/Resolved]
  - Hepatitis E [Recovered/Resolved]
  - Soft tissue infection [Unknown]
